FAERS Safety Report 15165501 (Version 2)
Quarter: 2018Q3

REPORT INFORMATION
  Report Type: Spontaneous
  Country: FR (occurrence: FR)
  Receive Date: 20180719
  Receipt Date: 20180723
  Transmission Date: 20181010
  Serious: Yes (Hospitalization)
  Sender: FDA-Public Use
  Company Number: FR-JNJFOC-20180721341

PATIENT
  Age: 91 Year
  Sex: Male
  Weight: 57 kg

DRUGS (9)
  1. TAHOR [Concomitant]
     Active Substance: ATORVASTATIN CALCIUM
     Route: 048
  2. DOLIPRANE [Concomitant]
     Active Substance: ACETAMINOPHEN
     Route: 048
  3. ACEBUTOLOL ALMUS [Concomitant]
     Route: 048
  4. LAROXYL [Suspect]
     Active Substance: AMITRIPTYLINE HYDROCHLORIDE
     Indication: WRONG PATIENT RECEIVED MEDICATION
     Route: 048
     Dates: start: 20180601, end: 20180601
  5. ASPEGIC [Concomitant]
     Active Substance: ASPIRIN DL-LYSINE
     Route: 048
  6. TRANSIPEG [Concomitant]
     Route: 048
  7. RISPERDAL [Suspect]
     Active Substance: RISPERIDONE
     Indication: WRONG PATIENT RECEIVED MEDICATION
     Route: 048
     Dates: start: 20180601, end: 20180601
  8. DULCILARMES [Concomitant]
     Route: 047
  9. CALCIDOSE VITAMINE D [Concomitant]
     Active Substance: CALCIUM\CHOLECALCIFEROL
     Route: 048

REACTIONS (3)
  - Somnolence [Recovered/Resolved]
  - Wrong patient received medication [Unknown]
  - Hypotension [Recovered/Resolved]

NARRATIVE: CASE EVENT DATE: 20180601
